FAERS Safety Report 9707763 (Version 1)
Quarter: 2013Q4

REPORT INFORMATION
  Report Type: Spontaneous
  Country: GB (occurrence: GB)
  Receive Date: 20131125
  Receipt Date: 20131125
  Transmission Date: 20140711
  Serious: Yes (Other)
  Sender: FDA-Public Use
  Company Number: GB-ASTRAZENECA-2013SE84749

PATIENT
  Age: 82 Year
  Sex: Female
  Weight: 85.9 kg

DRUGS (13)
  1. TICAGRELOR [Suspect]
     Indication: ACUTE MYOCARDIAL INFARCTION
     Route: 048
     Dates: start: 20130717, end: 20131107
  2. ADCAL-D3 [Concomitant]
  3. ASPIRIN [Concomitant]
  4. BISOPROLOL [Concomitant]
  5. FERROUS FUMARATE [Concomitant]
  6. FOLIC ACID [Concomitant]
  7. FUROSEMIDE [Concomitant]
  8. ISOSORBIDE [Concomitant]
  9. LANSOPRAZOLE [Concomitant]
  10. LEVOTHYROXINE [Concomitant]
  11. PREDNISOLONE [Concomitant]
  12. QUININE SULPHATE [Concomitant]
  13. SIMVASTATIN [Concomitant]

REACTIONS (3)
  - Activated partial thromboplastin time abnormal [Unknown]
  - Contusion [Recovering/Resolving]
  - Periorbital contusion [Recovering/Resolving]
